FAERS Safety Report 11835561 (Version 1)
Quarter: 2015Q4

REPORT INFORMATION
  Report Type: Spontaneous
  Country: US (occurrence: None)
  Receive Date: 20151214
  Receipt Date: 20151214
  Transmission Date: 20160305
  Serious: No
  Sender: FDA-Public Use
  Company Number: None

PATIENT
  Age: 32 Year
  Sex: Female
  Weight: 70 kg

DRUGS (2)
  1. VALACYCLOVIR TABLETS USP 500 MG MYLAN PHARMACEUTICALS INC [Suspect]
     Active Substance: VALACYCLOVIR HYDROCHLORIDE
     Indication: HERPES VIRUS INFECTION
     Dosage: 2 PILLS / DAY
     Route: 048
     Dates: start: 20150916, end: 20151212
  2. PRENATAL MULTIVITAMINS [Concomitant]
     Active Substance: VITAMINS

REACTIONS (3)
  - Maternal exposure during pregnancy [None]
  - Product quality issue [None]
  - Drug ineffective [None]

NARRATIVE: CASE EVENT DATE: 20151212
